FAERS Safety Report 18496518 (Version 1)
Quarter: 2020Q4

REPORT INFORMATION
  Report Type: Spontaneous
  Country: US (occurrence: US)
  Receive Date: 20201112
  Receipt Date: 20201112
  Transmission Date: 20210114
  Serious: No
  Sender: FDA-Public Use
  Company Number: US-009507513-2010USA008853

PATIENT
  Age: 70 Year
  Sex: Female

DRUGS (5)
  1. MELATONIN [Concomitant]
     Active Substance: MELATONIN
     Indication: INFLAMMATION
  2. BELSOMRA [Suspect]
     Active Substance: SUVOREXANT
     Indication: DELIRIUM
  3. MELATONIN [Concomitant]
     Active Substance: MELATONIN
     Indication: ANTIOXIDANT THERAPY
  4. MELATONIN [Concomitant]
     Active Substance: MELATONIN
     Indication: CIRCADIAN RHYTHM SLEEP DISORDER
     Dosage: 15 MILLIGRAM, NIGHTLY
  5. BELSOMRA [Suspect]
     Active Substance: SUVOREXANT
     Indication: CIRCADIAN RHYTHM SLEEP DISORDER
     Dosage: 20 MG ENTERIC AT NIGHT
     Route: 048

REACTIONS (1)
  - Off label use [Unknown]
